FAERS Safety Report 15416872 (Version 1)
Quarter: 2018Q3

REPORT INFORMATION
  Report Type: Spontaneous
  Country: IT (occurrence: IT)
  Receive Date: 20180924
  Receipt Date: 20180924
  Transmission Date: 20181010
  Serious: Yes (Other)
  Sender: FDA-Public Use
  Company Number: IT-AUROBINDO-AUR-APL-2018-046469

PATIENT
  Age: 58 Year
  Sex: Female

DRUGS (2)
  1. LORAZEPAM. [Suspect]
     Active Substance: LORAZEPAM
     Indication: PRODUCT USED FOR UNKNOWN INDICATION
     Dosage: 22.5 MILLIGRAM,IN TOTAL
     Route: 048
  2. ANEXATE [Suspect]
     Active Substance: FLUMAZENIL
     Indication: PRODUCT USED FOR UNKNOWN INDICATION
     Dosage: 1 DOSAGE FORM,AS NECESSARY
     Route: 042
     Dates: start: 20180827, end: 20180827

REACTIONS (6)
  - Suicide attempt [Recovered/Resolved]
  - Psychomotor hyperactivity [Recovered/Resolved]
  - Sopor [Recovered/Resolved]
  - Hyporesponsive to stimuli [Recovered/Resolved]
  - Intentional overdose [Recovered/Resolved]
  - Alcohol interaction [Recovered/Resolved]

NARRATIVE: CASE EVENT DATE: 20180827
